FAERS Safety Report 5460205-8 (Version None)
Quarter: 2007Q3

REPORT INFORMATION
  Report Type: 
  Country: None (occurrence: None)
  Receive Date: 20070919
  Receipt Date: 20070604
  Transmission Date: 20080115
  Serious: Yes (Other)
  Sender: FDA-Public Use
  Company Number: US-ASTRAZENECA-2007UW13447

PATIENT
  Age: 34 Year
  Sex: Male

DRUGS (14)
  1. SEROQUEL [Suspect]
     Indication: SLEEP DISORDER
     Route: 048
  2. SEROQUEL [Suspect]
     Indication: ANXIETY
     Route: 048
  3. SEROQUEL [Suspect]
     Route: 048
     Dates: start: 20070101
  4. SEROQUEL [Suspect]
     Route: 048
     Dates: start: 20070101
  5. SEROQUEL [Suspect]
     Route: 048
     Dates: start: 20070201
  6. SEROQUEL [Suspect]
     Route: 048
     Dates: start: 20070201
  7. SEROQUEL [Suspect]
     Dosage: 100 MG IN THE MORNING AND AT NOON AND 300 MG PRN
     Route: 048
     Dates: start: 20070301
  8. SEROQUEL [Suspect]
     Dosage: 100 MG IN THE MORNING AND AT NOON AND 300 MG PRN
     Route: 048
     Dates: start: 20070301
  9. SEROQUEL [Suspect]
     Dosage: 100 MG IN THE MORNING AND AT NOON AND 300 MG PRN
     Route: 048
     Dates: start: 20070401
  10. SEROQUEL [Suspect]
     Dosage: 100 MG IN THE MORNING AND AT NOON AND 300 MG PRN
     Route: 048
     Dates: start: 20070401
  11. SEROQUEL [Suspect]
     Route: 048
     Dates: start: 20070401
  12. SEROQUEL [Suspect]
     Route: 048
     Dates: start: 20070401
  13. TRAZODONE HCL [Concomitant]
  14. ATIVAN [Concomitant]

REACTIONS (8)
  - DYSPHAGIA [None]
  - MUSCULOSKELETAL STIFFNESS [None]
  - NEUROLEPTIC MALIGNANT SYNDROME [None]
  - PHARYNGEAL OEDEMA [None]
  - PYREXIA [None]
  - RASH [None]
  - SEDATION [None]
  - URTICARIA [None]
